FAERS Safety Report 8536457-4 (Version None)
Quarter: 2012Q3

REPORT INFORMATION
  Report Type: 
  Country: None (occurrence: None)
  Receive Date: 20120725
  Receipt Date: 20120711
  Transmission Date: 20120928
  Serious: Yes (Other)
  Sender: FDA-Public Use
  Company Number: GB-MYLANLABS-2012S1014474

PATIENT
  Age: 35 Year
  Sex: Male

DRUGS (3)
  1. DIDANOSINE [Suspect]
     Indication: HIV INFECTION
     Dosage: 250 MG/DAY
     Route: 065
  2. TENOFOVIR [Suspect]
     Indication: HIV INFECTION
     Dosage: 300 MG/DAY
     Route: 065
  3. KALETRA [Concomitant]
     Indication: HIV INFECTION
     Dosage: DF = 300MG LOPINAVIR/100MG RITONAVIR
     Route: 065

REACTIONS (6)
  - BONE MARROW OEDEMA SYNDROME [None]
  - OSTEOPOROSIS [None]
  - URINE PHOSPHORUS DECREASED [None]
  - VITAMIN D DEFICIENCY [None]
  - PROTEINURIA [None]
  - HYPOPHOSPHATAEMIA [None]
